FAERS Safety Report 4265042-8 (Version None)
Quarter: 2004Q1

REPORT INFORMATION
  Report Type: 
  Country: None (occurrence: None)
  Receive Date: 20040106
  Receipt Date: 20040106
  Transmission Date: 20041129
  Serious: Yes (Other)
  Sender: FDA-Public Use
  Company Number: None

PATIENT
  Sex: Female

DRUGS (4)
  1. AMILORIDE HCL AND HYDROCHLOROTHIAZIDE [Suspect]
     Dosage: 1 TAB QD
  2. ACTOS [Concomitant]
  3. NADOLOL [Concomitant]
  4. GLUCOTROL XL [Concomitant]

REACTIONS (4)
  - DYSPNOEA [None]
  - OEDEMA PERIPHERAL [None]
  - PHARMACEUTICAL PRODUCT COMPLAINT [None]
  - PRURITUS [None]
